FAERS Safety Report 7327304-7 (Version None)
Quarter: 2011Q1

REPORT INFORMATION
  Report Type: 
  Country: None (occurrence: None)
  Receive Date: 20110302
  Receipt Date: 20110222
  Transmission Date: 20110831
  Serious: Yes (Hospitalization)
  Sender: FDA-Public Use
  Company Number: US-GILEAD-2010-0032484

PATIENT
  Sex: Female

DRUGS (11)
  1. LETAIRIS [Suspect]
     Indication: PULMONARY HYPERTENSION
     Route: 048
     Dates: start: 20100406
  2. DIGOXIN [Concomitant]
  3. PREDNISONE TAB [Concomitant]
  4. GABAPENTIN [Concomitant]
  5. HYDROCHLOROTHIAZIDE [Concomitant]
  6. ASPIRIN [Concomitant]
  7. METOPROLOL [Concomitant]
  8. PLAVIX [Concomitant]
  9. ZOCOR [Concomitant]
  10. LASIX [Concomitant]
  11. LISINOPRIL [Concomitant]

REACTIONS (1)
  - CEREBROVASCULAR ACCIDENT [None]
